FAERS Safety Report 20834613 (Version 2)
Quarter: 2022Q2

REPORT INFORMATION
  Report Type: Report from Study
  Country: EG (occurrence: EG)
  Receive Date: 20220516
  Receipt Date: 20220520
  Transmission Date: 20220721
  Serious: Yes (Other)
  Sender: FDA-Public Use
  Company Number: EG-NOVARTISPH-NVSC2022EG110949

PATIENT
  Age: 35 Year
  Sex: Male

DRUGS (3)
  1. ENTRESTO [Interacting]
     Active Substance: SACUBITRIL\VALSARTAN
     Indication: Cardiac failure
     Dosage: 100 MG, BID
     Route: 048
     Dates: start: 20201105, end: 20211111
  2. ENTRESTO [Interacting]
     Active Substance: SACUBITRIL\VALSARTAN
     Indication: Ejection fraction
     Dosage: 50 MG, BID
     Route: 048
     Dates: start: 20211111
  3. BISOPROLOL FUMARATE [Concomitant]
     Active Substance: BISOPROLOL FUMARATE
     Indication: Cardiomyopathy
     Dosage: 1 DOSAGE FORM, QD (1-2 YEARS AGO)
     Route: 065

REACTIONS (8)
  - Renal impairment [Not Recovered/Not Resolved]
  - Myocardial oedema [Recovering/Resolving]
  - Oedema peripheral [Recovering/Resolving]
  - Generalised oedema [Recovering/Resolving]
  - Dyspnoea [Recovering/Resolving]
  - Neuropathy peripheral [Not Recovered/Not Resolved]
  - Hepatic steatosis [Unknown]
  - Fatigue [Unknown]

NARRATIVE: CASE EVENT DATE: 20211111
